FAERS Safety Report 18975078 (Version 3)
Quarter: 2022Q1

REPORT INFORMATION
  Report Type: Report from Study
  Country: US (occurrence: None)
  Receive Date: 20210306
  Receipt Date: 20220125
  Transmission Date: 20220423
  Serious: Yes (Other)
  Sender: FDA-Public Use
  Company Number: US-ROCHE-2783810

PATIENT
  Age: 86 Year
  Sex: Male
  Weight: 99.2 kg

DRUGS (5)
  1. ATEZOLIZUMAB [Suspect]
     Active Substance: ATEZOLIZUMAB
     Indication: Bladder cancer
     Dosage: LAST ADMINISTERED DATE: 22/JAN/2020, 2400 MG
     Route: 041
     Dates: start: 20191230
  2. FLUOROURACIL [Suspect]
     Active Substance: FLUOROURACIL
     Indication: Bladder cancer
     Dosage: LAST ADMINISTERED DATE: 22/JAN/2020, 11150 MG
     Route: 042
     Dates: start: 20191230
  3. MITOMYCIN C [Suspect]
     Active Substance: MITOMYCIN
     Indication: Bladder cancer
     Dosage: LAST ADMINISTERED DATE: 30/DEC/2019, 27.48 MG
     Route: 042
     Dates: start: 20191230
  4. GEMCITABINE HYDROCHLORIDE [Suspect]
     Active Substance: GEMCITABINE HYDROCHLORIDE
     Indication: Bladder cancer
     Route: 042
  5. CISPLATIN [Suspect]
     Active Substance: CISPLATIN
     Indication: Bladder cancer
     Route: 042

REACTIONS (1)
  - Rash maculo-papular [Recovered/Resolved]

NARRATIVE: CASE EVENT DATE: 20200127
